FAERS Safety Report 15300057 (Version 3)
Quarter: 2018Q4

REPORT INFORMATION
  Report Type: Spontaneous
  Country: US (occurrence: US)
  Receive Date: 20180821
  Receipt Date: 20181016
  Transmission Date: 20190204
  Serious: No
  Sender: FDA-Public Use
  Company Number: US-PFIZER INC-2017518871

PATIENT
  Age: 64 Year
  Sex: Male

DRUGS (1)
  1. METHOTREXATE SODIUM. [Suspect]
     Active Substance: METHOTREXATE SODIUM
     Indication: RHEUMATOID ARTHRITIS
     Dosage: UNK

REACTIONS (8)
  - Drug effect incomplete [Unknown]
  - Drug hypersensitivity [Unknown]
  - Depression [Unknown]
  - Condition aggravated [Unknown]
  - Nausea [Unknown]
  - Nodule [Unknown]
  - Fatigue [Unknown]
  - Abdominal pain [Unknown]
